FAERS Safety Report 6193139-4 (Version None)
Quarter: 2009Q2

REPORT INFORMATION
  Report Type: 
  Country: None (occurrence: None)
  Receive Date: 20090514
  Receipt Date: 20090514
  Transmission Date: 20091009
  Serious: Yes (Hospitalization)
  Sender: FDA-Public Use
  Company Number: None

PATIENT
  Age: 26 Year
  Sex: Female
  Weight: 57.1532 kg

DRUGS (2)
  1. YAZ [Suspect]
     Indication: CONTRACEPTION
     Dates: start: 20080701, end: 20090201
  2. YAZ [Suspect]
     Indication: PREMENSTRUAL SYNDROME
     Dates: start: 20080701, end: 20090201

REACTIONS (7)
  - CONSTIPATION [None]
  - DEHYDRATION [None]
  - FEELING ABNORMAL [None]
  - NAUSEA [None]
  - PALPITATIONS [None]
  - PRESYNCOPE [None]
  - SYNCOPE [None]
